FAERS Safety Report 5515484-5 (Version None)
Quarter: 2007Q4

REPORT INFORMATION
  Report Type: 
  Country: None (occurrence: None)
  Receive Date: 20071113
  Receipt Date: 20070301
  Transmission Date: 20080405
  Serious: No
  Sender: FDA-Public Use
  Company Number: A0641499A

PATIENT
  Age: 58 Year
  Sex: Female

DRUGS (10)
  1. COREG [Suspect]
     Dosage: 12.5MG TWICE PER DAY
     Route: 048
     Dates: start: 20060401
  2. DIOVAN [Concomitant]
  3. ISOSORBIDE MONONITRATE [Concomitant]
  4. FUROSEMIDE [Concomitant]
  5. PLAVIX [Concomitant]
  6. RANEXA [Concomitant]
  7. ASPIRIN [Concomitant]
  8. VYTORIN [Concomitant]
  9. NITROQUICK [Concomitant]
  10. TRAMADOL [Concomitant]

REACTIONS (4)
  - COUGH [None]
  - INCREASED UPPER AIRWAY SECRETION [None]
  - LACRIMATION INCREASED [None]
  - THROAT IRRITATION [None]
